FAERS Safety Report 24677803 (Version 1)
Quarter: 2024Q4

REPORT INFORMATION
  Report Type: Spontaneous
  Country: JP (occurrence: JP)
  Receive Date: 20241129
  Receipt Date: 20241129
  Transmission Date: 20250115
  Serious: Yes (Death)
  Sender: GLAXOSMITHKLINE
  Company Number: JP-GSK-JP2024JPN064301

PATIENT

DRUGS (3)
  1. DAPRODUSTAT [Suspect]
     Active Substance: DAPRODUSTAT
     Indication: Nephrogenic anaemia
     Dosage: 4 MG
  2. DAPRODUSTAT [Suspect]
     Active Substance: DAPRODUSTAT
     Dosage: 12 MG
     Route: 048
     Dates: start: 202311
  3. DARBEPOETIN ALFA [Concomitant]
     Active Substance: DARBEPOETIN ALFA
     Indication: Nephrogenic anaemia
     Dosage: UNK, WE

REACTIONS (5)
  - Marasmus [Fatal]
  - Platelet count decreased [Not Recovered/Not Resolved]
  - White blood cell count decreased [Unknown]
  - Bone marrow disorder [Unknown]
  - Haemoglobin decreased [Unknown]

NARRATIVE: CASE EVENT DATE: 20240101
